FAERS Safety Report 5363415-3 (Version None)
Quarter: 2007Q2

REPORT INFORMATION
  Report Type: 
  Country: None (occurrence: None)
  Receive Date: 20070618
  Receipt Date: 20070605
  Transmission Date: 20071010
  Serious: Yes (Life-Threatening)
  Sender: FDA-Public Use
  Company Number: VISP-NO-0706S-0240

PATIENT
  Age: 81 Year
  Sex: Female
  Weight: 55 kg

DRUGS (1)
  1. VISIPAQUE [Suspect]
     Indication: TAKAYASU'S ARTERITIS
     Dosage: 150 ML, SINGLE DOSE, I.A.
     Route: 013
     Dates: start: 20070316, end: 20070316

REACTIONS (1)
  - RESPIRATORY FAILURE [None]
